FAERS Safety Report 7807727-X (Version None)
Quarter: 2011Q4

REPORT INFORMATION
  Report Type: 
  Country: None (occurrence: None)
  Receive Date: 20111011
  Receipt Date: 20111003
  Transmission Date: 20120403
  Serious: Yes (Hospitalization, Other)
  Sender: FDA-Public Use
  Company Number: US-ACTELION-A-US2011-54041

PATIENT

DRUGS (17)
  1. TRACLEER [Suspect]
     Dosage: 125
     Route: 048
  2. NEXIUM [Concomitant]
  3. LANTUS [Concomitant]
  4. VITAMIN B6 [Concomitant]
  5. DISALCID [Suspect]
  6. REVATIO [Concomitant]
  7. COUMADIN [Concomitant]
  8. TRACLEER [Suspect]
     Indication: PULMONARY ARTERIAL HYPERTENSION
     Dosage: 62.5
     Route: 048
     Dates: start: 20020112
  9. OXYCONTIN [Concomitant]
  10. IRON [Concomitant]
  11. ROCALTROL [Concomitant]
  12. LISINOPRIL [Suspect]
  13. MYCOPHENOLATE MOFETIL (CELLCEPT) [Concomitant]
  14. LASIX [Concomitant]
  15. SYNTHROID [Concomitant]
  16. VITAMIN D [Concomitant]
  17. POTASSIUM CHLORIDE [Concomitant]

REACTIONS (4)
  - TRANSAMINASES INCREASED [None]
  - BLOOD CREATININE INCREASED [None]
  - DEHYDRATION [None]
  - DYSPNOEA [None]
